FAERS Safety Report 7110254-9 (Version None)
Quarter: 2010Q4

REPORT INFORMATION
  Report Type: 
  Country: None (occurrence: None)
  Receive Date: 20101118
  Receipt Date: 20101107
  Transmission Date: 20110411
  Serious: Yes (Other)
  Sender: FDA-Public Use
  Company Number: SK-JNJFOC-20101002614

PATIENT
  Sex: Female

DRUGS (6)
  1. REMICADE [Suspect]
     Indication: PRODUCT USED FOR UNKNOWN INDICATION
     Dosage: TREATED FOR FIVE YEARS
     Route: 042
  2. METHOTREXATE [Concomitant]
  3. ACIDUM FOLICUM [Concomitant]
     Dosage: 2 TABLESPOONS ONCE A WEEK
  4. RECOXA [Concomitant]
  5. EGILOK [Concomitant]
  6. EUTHYROX [Concomitant]

REACTIONS (3)
  - ALVEOLITIS [None]
  - BRONCHIOLITIS [None]
  - LOWER RESPIRATORY TRACT INFECTION [None]
